FAERS Safety Report 7707568-8 (Version None)
Quarter: 2011Q3

REPORT INFORMATION
  Report Type: 
  Country: None (occurrence: None)
  Receive Date: 20110818
  Receipt Date: 20110816
  Transmission Date: 20111222
  Serious: Yes (Life-Threatening, Hospitalization)
  Sender: FDA-Public Use
  Company Number: 2010SP061885

PATIENT
  Age: 67 Year
  Sex: Female

DRUGS (11)
  1. BACTRIM [Concomitant]
  2. DOXORUBICIN HCL [Suspect]
     Indication: OVARIAN CANCER
     Dosage: 90 MG;IV ; 72 MG;IV
     Route: 042
     Dates: start: 20100803, end: 20100803
  3. DOXORUBICIN HCL [Suspect]
     Indication: OVARIAN CANCER
     Dosage: 90 MG;IV ; 72 MG;IV
     Route: 042
     Dates: start: 20100831, end: 20100831
  4. CANDESARTAN CILEXETIL [Concomitant]
  5. PYRIDOXINE HYDROCHLORIDE [Concomitant]
  6. CARBOPLATIN [Concomitant]
  7. TAXOL [Concomitant]
  8. TEMOZOLOMIDE [Suspect]
     Indication: OVARIAN CANCER
     Dosage: 150 MG/M2;PO
     Route: 048
     Dates: start: 20101012, end: 20101016
  9. LEVOTHYROXINE SODIUM [Concomitant]
  10. ABT-888 [Suspect]
     Indication: OVARIAN CANCER
     Dosage: 40 MG;PO
     Route: 048
     Dates: start: 20101012, end: 20101018
  11. DOCUSATE [Concomitant]

REACTIONS (7)
  - HYPOTENSION [None]
  - RECTAL HAEMORRHAGE [None]
  - FEBRILE NEUTROPENIA [None]
  - THROMBOCYTOPENIA [None]
  - URINARY TRACT INFECTION [None]
  - ENTEROCOCCUS TEST POSITIVE [None]
  - LEUKOPENIA [None]
